FAERS Safety Report 25217875 (Version 2)
Quarter: 2025Q4

REPORT INFORMATION
  Report Type: Report from Study
  Country: US (occurrence: US)
  Receive Date: 20250421
  Receipt Date: 20251020
  Transmission Date: 20260118
  Serious: Yes (Other)
  Sender: ABBVIE
  Company Number: US-ABBVIE-6142838

PATIENT
  Age: 62 Year
  Sex: Female

DRUGS (3)
  1. RINVOQ [Suspect]
     Active Substance: UPADACITINIB
     Indication: Rheumatoid arthritis
     Route: 048
     Dates: start: 20220618
  2. RINVOQ [Suspect]
     Active Substance: UPADACITINIB
     Indication: Rheumatoid arthritis
     Route: 048
  3. ROSUVASTATIN [Suspect]
     Active Substance: ROSUVASTATIN
     Indication: Blood cholesterol abnormal
     Route: 065
     Dates: start: 202401

REACTIONS (10)
  - Foot operation [Recovering/Resolving]
  - Blood cholesterol increased [Not Recovered/Not Resolved]
  - Tendonitis [Unknown]
  - Nerve compression [Recovered/Resolved]
  - Arthralgia [Not Recovered/Not Resolved]
  - Pain in extremity [Unknown]
  - Skin discolouration [Unknown]
  - Peripheral swelling [Unknown]
  - Arthritis [Unknown]
  - Tenoplasty [Recovered/Resolved]

NARRATIVE: CASE EVENT DATE: 20240128
